FAERS Safety Report 6717790-5 (Version None)
Quarter: 2010Q2

REPORT INFORMATION
  Report Type: 
  Country: None (occurrence: None)
  Receive Date: 20100510
  Receipt Date: 20100503
  Transmission Date: 20101027
  Serious: Yes (Other)
  Sender: FDA-Public Use
  Company Number: CA-PFIZER INC-2010055440

PATIENT
  Age: 78 Year
  Sex: Male

DRUGS (1)
  1. VIAGRA [Suspect]
     Dosage: 50 MG, (CUTS 100 MG IN HALF)

REACTIONS (3)
  - ERYTHEMA [None]
  - GROIN PAIN [None]
  - ORCHITIS NONINFECTIVE [None]
